FAERS Safety Report 6812979-9 (Version None)
Quarter: 2010Q2

REPORT INFORMATION
  Report Type: 
  Country: None (occurrence: None)
  Receive Date: 20100628
  Receipt Date: 20100614
  Transmission Date: 20101027
  Serious: Yes (Other)
  Sender: FDA-Public Use
  Company Number: 7008076

PATIENT
  Age: 44 Year
  Sex: Female
  Weight: 66 kg

DRUGS (3)
  1. REBIF [Suspect]
     Indication: DRUG USE FOR UNKNOWN INDICATION
     Dosage: 44 MCG, 3 IN 1 WK, SUBCUTANEOUS
     Route: 058
     Dates: start: 20030315
  2. ACETAMINOPHEN [Concomitant]
  3. IBUPROFEN [Concomitant]

REACTIONS (5)
  - ANAEMIA [None]
  - CONSTIPATION [None]
  - CONTUSION [None]
  - HEADACHE [None]
  - RECTAL PROLAPSE [None]
